FAERS Safety Report 8865773 (Version 1)
Quarter: 2012Q4

REPORT INFORMATION
  Report Type: 
  Country: US (occurrence: US)
  Receive Date: 20121024
  Receipt Date: 20121024
  Transmission Date: 20130627
  Serious: Yes (Other)
  Sender: FDA-Public Use
  Company Number: US-AMGEN-USASP2012000645

PATIENT
  Age: 59 Year
  Sex: Female
  Weight: 102.95 kg

DRUGS (6)
  1. ENBREL [Suspect]
     Indication: RHEUMATOID ARTHRITIS
     Dosage: 50 mg, qwk
     Route: 058
     Dates: start: 20110112, end: 20110112
  2. CIMZIA [Concomitant]
  3. PREDNISONE [Concomitant]
     Dosage: 5 mg, UNK
  4. BUSPIRONE [Concomitant]
     Dosage: UNK
  5. TRAMADOL [Concomitant]
     Dosage: 50 mg, prn
  6. ALEVE [Concomitant]
     Dosage: 220 mg, prn

REACTIONS (6)
  - Hypersensitivity [Recovered/Resolved]
  - Palpitations [Recovered/Resolved]
  - Chest discomfort [Recovered/Resolved]
  - Dyspnoea [Recovered/Resolved]
  - Pruritus generalised [Recovered/Resolved]
  - Rash [Recovered/Resolved]
